FAERS Safety Report 5167558-9 (Version None)
Quarter: 2006Q4

REPORT INFORMATION
  Report Type: 
  Country: None (occurrence: None)
  Receive Date: 20060830
  Receipt Date: 20060616
  Transmission Date: 20070319
  Serious: No
  Sender: FDA-Public Use
  Company Number: 225850

PATIENT
  Sex: 0

DRUGS (1)
  1. XOLAIR [Suspect]
     Indication: ASTHMA
     Dosage: 1/WEEK
     Dates: start: 20060301

REACTIONS (2)
  - ALOPECIA [None]
  - OSTEOARTHRITIS [None]
